FAERS Safety Report 21301678 (Version 1)
Quarter: 2022Q3

REPORT INFORMATION
  Report Type: Spontaneous
  Country: US (occurrence: US)
  Receive Date: 20220907
  Receipt Date: 20220907
  Transmission Date: 20221026
  Serious: Yes (Other)
  Sender: FDA-Public Use
  Company Number: US-BAYER-2022A120494

PATIENT
  Age: 57 Year
  Sex: Female

DRUGS (2)
  1. ASPIRIN [Suspect]
     Active Substance: ASPIRIN
     Dosage: 20MG DAILY
  2. RIVAROXABAN [Suspect]
     Active Substance: RIVAROXABAN

REACTIONS (8)
  - Fibrillary glomerulonephritis [None]
  - C3 glomerulopathy [None]
  - Serratia bacteraemia [None]
  - Acute kidney injury [None]
  - Haemorrhage urinary tract [None]
  - Haematuria [None]
  - Dysuria [None]
  - Oedema peripheral [None]
